FAERS Safety Report 15167485 (Version 3)
Quarter: 2018Q4

REPORT INFORMATION
  Report Type: Report from Study
  Country: US (occurrence: US)
  Receive Date: 20180719
  Receipt Date: 20181102
  Transmission Date: 20190204
  Serious: Yes (Hospitalization)
  Sender: FDA-Public Use
  Company Number: US-ACTELION-A-US2018-175657

PATIENT
  Age: 62 Year
  Sex: Female
  Weight: 71.2 kg

DRUGS (13)
  1. LOMOTIL [Concomitant]
     Active Substance: ATROPINE SULFATE\DIPHENOXYLATE HYDROCHLORIDE
  2. METFORMIN [Concomitant]
     Active Substance: METFORMIN HYDROCHLORIDE
  3. DIOVAN [Concomitant]
     Active Substance: VALSARTAN
  4. BYSTOLIC [Concomitant]
     Active Substance: NEBIVOLOL HYDROCHLORIDE
     Dosage: 5 MG, UNK
  5. POTASSIUM CHLORIDE. [Concomitant]
     Active Substance: POTASSIUM CHLORIDE
  6. IRON [Suspect]
     Active Substance: IRON
     Indication: ANAEMIA
     Route: 042
  7. LETAIRIS [Concomitant]
     Active Substance: AMBRISENTAN
     Dosage: 10 MG, UNK
  8. SUCRALFATE. [Concomitant]
     Active Substance: SUCRALFATE
  9. ADCIRCA [Concomitant]
     Active Substance: TADALAFIL
  10. UPTRAVI [Suspect]
     Active Substance: SELEXIPAG
     Indication: PULMONARY HYPERTENSION
     Dosage: 1200 MCG, BID
     Route: 048
     Dates: start: 20180409
  11. TRAMADOL. [Concomitant]
     Active Substance: TRAMADOL
  12. LASIX [Concomitant]
     Active Substance: FUROSEMIDE
  13. OMEPRAZOLE. [Concomitant]
     Active Substance: OMEPRAZOLE

REACTIONS (10)
  - Diarrhoea [Unknown]
  - Dyspnoea [Unknown]
  - Cardiac arrest [Recovered/Resolved]
  - Fluid retention [Unknown]
  - Headache [Unknown]
  - Mobility decreased [Unknown]
  - Cardio-respiratory arrest [Unknown]
  - Anaphylactic reaction [Recovered/Resolved]
  - Anaemia [Unknown]
  - Blood iron decreased [Unknown]

NARRATIVE: CASE EVENT DATE: 20180625
